FAERS Safety Report 21347459 (Version 2)
Quarter: 2022Q4

REPORT INFORMATION
  Report Type: Spontaneous
  Country: US (occurrence: US)
  Receive Date: 20220919
  Receipt Date: 20221010
  Transmission Date: 20230112
  Serious: Yes (Death, Hospitalization, Other)
  Sender: FDA-Public Use
  Company Number: US-COHERUS BIOSCIENCES INC-2022-COH-US000039

PATIENT

DRUGS (3)
  1. UDENYCA [Suspect]
     Active Substance: PEGFILGRASTIM-CBQV
     Indication: Acute lymphocytic leukaemia
     Dosage: 6 MG
     Dates: start: 20220406, end: 20220703
  2. ONCASPAR [Concomitant]
     Active Substance: PEGASPARGASE
     Dosage: 3750 IU
     Dates: start: 20220512
  3. RUXIENCE [Concomitant]
     Active Substance: RITUXIMAB-PVVR
     Dosage: UNK
     Dates: start: 20220405, end: 20220702

REACTIONS (6)
  - Cardiac arrest [Fatal]
  - Dysphagia [Unknown]
  - Respiratory failure [Unknown]
  - COVID-19 [Unknown]
  - Deep vein thrombosis [Unknown]
  - Thrombocytopenia [None]

NARRATIVE: CASE EVENT DATE: 20220806
